FAERS Safety Report 7409991-8 (Version None)
Quarter: 2011Q2

REPORT INFORMATION
  Report Type: 
  Country: None (occurrence: None)
  Receive Date: 20110412
  Receipt Date: 20110406
  Transmission Date: 20111010
  Serious: Yes (Other)
  Sender: FDA-Public Use
  Company Number: US-PFIZER INC-2011047464

PATIENT
  Sex: Female
  Weight: 70.3 kg

DRUGS (3)
  1. NEURONTIN [Suspect]
     Indication: FIBROMYALGIA
     Dosage: 600 MG, 3X/DAY
     Route: 048
     Dates: start: 20100101
  2. CORGARD [Concomitant]
     Indication: HEART RATE INCREASED
     Dosage: UNK, 2X/DAY
  3. LYRICA [Suspect]
     Dosage: UNK

REACTIONS (4)
  - TOOTH EROSION [None]
  - BLOOD CHOLESTEROL ABNORMAL [None]
  - MEDICATION RESIDUE [None]
  - DRUG INEFFECTIVE [None]
